FAERS Safety Report 20817505 (Version 1)
Quarter: 2022Q2

REPORT INFORMATION
  Report Type: Spontaneous
  Country: PT (occurrence: PT)
  Receive Date: 20220512
  Receipt Date: 20220512
  Transmission Date: 20220720
  Serious: Yes (Hospitalization, Other)
  Sender: FDA-Public Use
  Company Number: PT-Accord-263040

PATIENT
  Age: 68 Year
  Sex: Female

DRUGS (9)
  1. METHOTREXATE [Suspect]
     Active Substance: METHOTREXATE
     Indication: Rheumatoid arthritis
     Dosage: APPROXIMATELY 0.15 MG/KG PER DAY (PRESCRIPTION WAS 7.5 MG PER WEEK,
     Route: 048
  2. PANTOPRAZOLE [Suspect]
     Active Substance: PANTOPRAZOLE
     Indication: Product used for unknown indication
     Dosage: 40 MG DAILY
  3. TRAMADOL [Concomitant]
     Active Substance: TRAMADOL
     Dosage: 100 MG DAILY
  4. GABAPENTIN [Concomitant]
     Active Substance: GABAPENTIN
     Dosage: 400 MG DAILY
  5. CYCLOBENZAPRINE HYDROCHLORIDE [Concomitant]
     Active Substance: CYCLOBENZAPRINE HYDROCHLORIDE
     Dosage: 10 MG DAILY
  6. SERTRALINE [Concomitant]
     Active Substance: SERTRALINE HYDROCHLORIDE
     Dosage: 50 MG DAILY
  7. CLONAZEPAM [Concomitant]
     Active Substance: CLONAZEPAM
     Dosage: 2 MG DAILY
  8. FENOFIBRATE [Concomitant]
     Active Substance: FENOFIBRATE
     Dosage: 267 MG DAILY
  9. DEFLAZACORT [Concomitant]
     Active Substance: DEFLAZACORT
     Dosage: 30 MG DAILY DOSE

REACTIONS (4)
  - Medication error [Unknown]
  - Pneumonitis [Recovered/Resolved]
  - Pancytopenia [Recovered/Resolved]
  - Mucosal inflammation [Recovered/Resolved]
